FAERS Safety Report 7365618-5 (Version None)
Quarter: 2011Q1

REPORT INFORMATION
  Report Type: 
  Country: None (occurrence: None)
  Receive Date: 20110316
  Receipt Date: 20110316
  Transmission Date: 20110831
  Serious: Yes (Other)
  Sender: FDA-Public Use
  Company Number: None

PATIENT
  Sex: Female
  Weight: 72.1219 kg

DRUGS (3)
  1. ZOLPIDEM [Suspect]
     Indication: INSOMNIA
     Dosage: 10MG QHS PRN PO
     Route: 048
     Dates: start: 20101201
  2. ZOLPIDEM [Suspect]
     Indication: INSOMNIA
     Dosage: 10MG QHS PRN PO
     Route: 048
     Dates: start: 20110101
  3. ZOLPIDEM [Suspect]
     Indication: INSOMNIA
     Dosage: 10MG QHS PRN PO
     Route: 048
     Dates: start: 20110201

REACTIONS (2)
  - PRODUCT SUBSTITUTION ISSUE [None]
  - HEADACHE [None]
